FAERS Safety Report 9062754 (Version 2)
Quarter: 2013Q2

REPORT INFORMATION
  Report Type: Spontaneous
  Country: US (occurrence: US)
  Receive Date: 20130213
  Receipt Date: 20130430
  Transmission Date: 20140414
  Serious: No
  Sender: FDA-Public Use
  Company Number: US-PFIZER INC-2013049572

PATIENT
  Sex: Female

DRUGS (5)
  1. SONATA [Suspect]
     Indication: SLEEP DISORDER
     Dosage: 10 MG, TWO TABLETS HS
  2. SONATA [Suspect]
     Indication: INSOMNIA
  3. LEXAPRO [Concomitant]
     Dosage: 30 MG, AM
  4. KLONOPIN [Concomitant]
     Dosage: 0.5 MG, HS
  5. TRAZODONE [Concomitant]
     Dosage: 50 MG, HS

REACTIONS (4)
  - Somnambulism [Unknown]
  - Dysstasia [Unknown]
  - Gait disturbance [Unknown]
  - Memory impairment [Unknown]
